FAERS Safety Report 9068464 (Version 1)
Quarter: 2013Q1

REPORT INFORMATION
  Report Type: Spontaneous
  Country: US (occurrence: None)
  Receive Date: 20130212
  Receipt Date: 20130212
  Transmission Date: 20140127
  Serious: Yes (Hospitalization, Disabling)
  Sender: FDA-Public Use
  Company Number: None

PATIENT
  Sex: Female
  Weight: 76.2 kg

DRUGS (1)
  1. EFFEXOR [Suspect]
     Indication: DEPRESSION
     Dosage: 150 MG ONCE DAILY PO
     Route: 048
     Dates: start: 20100501, end: 20130206

REACTIONS (12)
  - Agitation [None]
  - Hostility [None]
  - Stress [None]
  - Withdrawal syndrome [None]
  - Muscle twitching [None]
  - Panic attack [None]
  - Headache [None]
  - Crying [None]
  - Anger [None]
  - Nightmare [None]
  - Night sweats [None]
  - Impaired work ability [None]
